FAERS Safety Report 7725158-8 (Version None)
Quarter: 2011Q3

REPORT INFORMATION
  Report Type: 
  Country: None (occurrence: None)
  Receive Date: 20110901
  Receipt Date: 20110829
  Transmission Date: 20111222
  Serious: Yes (Hospitalization)
  Sender: FDA-Public Use
  Company Number: FR-MERCK-1108FRA00112

PATIENT
  Age: 79 Year
  Sex: Male
  Weight: 94 kg

DRUGS (4)
  1. ALLOPURINOL [Concomitant]
     Indication: HYPERURICAEMIA
     Route: 048
     Dates: start: 20090204
  2. FELODIPINE [Concomitant]
     Indication: HYPERTENSION
     Route: 048
     Dates: start: 20090204
  3. JANUVIA [Suspect]
     Indication: TYPE 2 DIABETES MELLITUS
     Route: 048
     Dates: start: 20100106, end: 20110501
  4. FINASTERIDE [Concomitant]
     Indication: PROSTATIC ADENOMA
     Route: 048
     Dates: start: 20090327

REACTIONS (1)
  - ISCHAEMIC STROKE [None]
